FAERS Safety Report 5221301-3 (Version None)
Quarter: 2007Q1

REPORT INFORMATION
  Report Type: 
  Country: None (occurrence: None)
  Receive Date: 20070126
  Receipt Date: 20070115
  Transmission Date: 20070707
  Serious: Yes (Life-Threatening, Hospitalization, Disabling)
  Sender: FDA-Public Use
  Company Number: ZA-ROCHE-477672

PATIENT
  Age: 34 Year
  Sex: Female

DRUGS (1)
  1. LARIAM [Suspect]
     Indication: MALARIA PROPHYLAXIS
     Route: 048
     Dates: start: 20060515, end: 20060515

REACTIONS (3)
  - CORNEAL SCAR [None]
  - DRY EYE [None]
  - STEVENS-JOHNSON SYNDROME [None]
